FAERS Safety Report 14273799 (Version 1)
Quarter: 2017Q4

REPORT INFORMATION
  Report Type: Spontaneous
  Country: GB (occurrence: GB)
  Receive Date: 20171211
  Receipt Date: 20171211
  Transmission Date: 20180321
  Serious: Yes (Disabling)
  Sender: FDA-Public Use
  Company Number: GB-009507513-1712GBR004713

PATIENT
  Age: 63 Year
  Sex: Male
  Weight: 128 kg

DRUGS (37)
  1. GAVISCON ADVANCE (POTASSIUM BICARBONATE (+) SODIUM ALGINATE) [Concomitant]
  2. CEFUROXIME. [Concomitant]
     Active Substance: CEFUROXIME
  3. GELOPLASMA [Concomitant]
  4. ACETAMINOPHEN. [Concomitant]
     Active Substance: ACETAMINOPHEN
  5. RANITIDINE HYDROCHLORIDE. [Concomitant]
     Active Substance: RANITIDINE HYDROCHLORIDE
  6. EPLERENONE. [Concomitant]
     Active Substance: EPLERENONE
  7. ALBUTEROL SULFATE. [Concomitant]
     Active Substance: ALBUTEROL SULFATE
  8. PHOSPHATE (UNSPECIFIED) [Concomitant]
  9. ONDANSETRON HYDROCHLORIDE. [Concomitant]
     Active Substance: ONDANSETRON HYDROCHLORIDE
  10. FORTISIP [Concomitant]
     Active Substance: CARBOHYDRATES\FATTY ACIDS\MINERALS\PROTEIN\VITAMINS
  11. DOCUSATE SODIUM. [Concomitant]
     Active Substance: DOCUSATE SODIUM
  12. ENOXAPARIN SODIUM. [Concomitant]
     Active Substance: ENOXAPARIN SODIUM
  13. MAGNESIUM ACETATE [Concomitant]
     Active Substance: MAGNESIUM ACETATE
  14. FUROSEMIDE. [Concomitant]
     Active Substance: FUROSEMIDE
  15. CANDESARTAN CILEXETIL. [Concomitant]
     Active Substance: CANDESARTAN CILEXETIL
  16. DIAZEPAM. [Concomitant]
     Active Substance: DIAZEPAM
  17. POTASSIUM CHLORIDE. [Concomitant]
     Active Substance: POTASSIUM CHLORIDE
  18. GENTAMICIN SULFATE. [Concomitant]
     Active Substance: GENTAMICIN SULFATE
  19. OXYCODONE HYDROCHLORIDE. [Concomitant]
     Active Substance: OXYCODONE HYDROCHLORIDE
  20. AMOXICILLIN. [Concomitant]
     Active Substance: AMOXICILLIN
     Indication: ENDOCARDITIS CANDIDA
  21. SANDO-K [Concomitant]
     Active Substance: POTASSIUM BICARBONATE\POTASSIUM CHLORIDE
  22. LACTULOSE. [Concomitant]
     Active Substance: LACTULOSE
  23. ALLOPURINOL. [Concomitant]
     Active Substance: ALLOPURINOL
  24. NITROGLYCERIN. [Concomitant]
     Active Substance: NITROGLYCERIN
  25. TAZOCIN (PIPERACILLIN SODIUM (+) TAZOBACTAM SODIUM) [Concomitant]
     Active Substance: PIPERACILLIN SODIUM\TAZOBACTAM SODIUM
  26. CORSODYL [Concomitant]
     Active Substance: CHLORHEXIDINE GLUCONATE
  27. ZOPICLONE [Concomitant]
     Active Substance: ZOPICLONE
  28. VORICONAZOLE. [Suspect]
     Active Substance: VORICONAZOLE
     Indication: ENDOCARDITIS CANDIDA
     Route: 042
     Dates: start: 20171031, end: 20171106
  29. DIHYDROCODEINE BITARTRATE [Concomitant]
     Active Substance: DIHYDROCODEINE BITARTRATE
  30. ASPIRIN. [Concomitant]
     Active Substance: ASPIRIN
  31. GLYCERIN. [Concomitant]
     Active Substance: GLYCERIN
  32. CASPOFUNGIN ACETATE. [Suspect]
     Active Substance: CASPOFUNGIN ACETATE
     Dosage: UNK
     Route: 042
     Dates: start: 201701, end: 201703
  33. ALFACALCIDOL [Concomitant]
     Active Substance: ALFACALCIDOL
  34. INSULIN GLULISINE [Concomitant]
     Active Substance: INSULIN GLULISINE
  35. CASSIA [Concomitant]
  36. CASPOFUNGIN ACETATE. [Suspect]
     Active Substance: CASPOFUNGIN ACETATE
     Indication: ENDOCARDITIS CANDIDA
     Dosage: IMMEDIATE (STAT).
     Route: 042
     Dates: start: 20171113, end: 20171113
  37. LANSOPRAZOLE. [Concomitant]
     Active Substance: LANSOPRAZOLE

REACTIONS (2)
  - Blindness [Unknown]
  - Hypoacusis [Unknown]
